FAERS Safety Report 10196579 (Version 1)
Quarter: 2014Q2

REPORT INFORMATION
  Report Type: Spontaneous
  Country: US (occurrence: US)
  Receive Date: 20140527
  Receipt Date: 20140527
  Transmission Date: 20141212
  Serious: No
  Sender: FDA-Public Use
  Company Number: US-TEVA-484334USA

PATIENT
  Age: 14 Year
  Sex: Female
  Weight: 76.27 kg

DRUGS (3)
  1. PLAN B ONE-STEP [Suspect]
     Indication: POST COITAL CONTRACEPTION
     Dosage: 1.5 MILLIGRAM DAILY;
     Route: 048
     Dates: start: 20140504, end: 20140504
  2. RIMON [Concomitant]
     Indication: ANXIETY
  3. RIMON [Concomitant]
     Indication: DEPRESSION

REACTIONS (1)
  - Menstruation irregular [Recovered/Resolved]
